FAERS Safety Report 12531293 (Version 1)
Quarter: 2016Q3

REPORT INFORMATION
  Report Type: Spontaneous
  Country: US (occurrence: US)
  Receive Date: 20160706
  Receipt Date: 20160706
  Transmission Date: 20161109
  Serious: No
  Sender: FDA-Public Use
  Company Number: US-PFIZER INC-2995779

PATIENT
  Age: 81 Year
  Sex: Male
  Weight: 90.91 kg

DRUGS (6)
  1. BUPIVACAINE. [Concomitant]
     Active Substance: BUPIVACAINE
     Indication: PAIN
     Dosage: 1 UNK, ONCE; ROUTE: INJECTION
     Route: 050
     Dates: start: 20150803, end: 20150803
  2. FENTANYL CITRATE. [Suspect]
     Active Substance: FENTANYL CITRATE
     Indication: PAIN
     Dosage: 50 UG, FREQ: 1 MINUTE; INTERVAL: 2
     Route: 042
     Dates: start: 20150803, end: 20150803
  3. CELESTONE [Concomitant]
     Active Substance: BETAMETHASONE
     Indication: INFLAMMATION
     Dosage: 3 MG, ONCE; ROUTE: INJECTION
     Route: 050
     Dates: start: 20150803, end: 20150803
  4. LIDOCAINE. [Concomitant]
     Active Substance: LIDOCAINE
     Indication: PAIN
     Dosage: 2 UNK, ONCE; ROUTE: INJECTION
     Route: 050
     Dates: start: 20150803, end: 20150803
  5. MIDAZOLAM [Suspect]
     Active Substance: MIDAZOLAM\MIDAZOLAM HYDROCHLORIDE
     Indication: ANXIETY
     Dosage: 1 MG, DOSE ALSO REPORTED AS 1 ML, FREQ: 1 MINUTE; INTERVAL: 2
     Route: 042
     Dates: start: 20150803, end: 20150803
  6. IOHEXOL [Concomitant]
     Active Substance: IOHEXOL
     Indication: IMAGING PROCEDURE
     Dosage: 0.5 UNK, ONCE; ROUTE: INJECTION
     Route: 050
     Dates: start: 20150803, end: 20150803

REACTIONS (1)
  - Hypersensitivity [Recovered/Resolved]

NARRATIVE: CASE EVENT DATE: 20150803
